FAERS Safety Report 7528052-0 (Version None)
Quarter: 2011Q2

REPORT INFORMATION
  Report Type: 
  Country: None (occurrence: None)
  Receive Date: 20110607
  Receipt Date: 20110531
  Transmission Date: 20111010
  Serious: Yes (Hospitalization)
  Sender: FDA-Public Use
  Company Number: TR-BRISTOL-MYERS SQUIBB COMPANY-15792484

PATIENT
  Age: 14 Year
  Sex: Male

DRUGS (6)
  1. NETILMICIN [Suspect]
     Indication: PNEUMONIA
  2. CYCLOPHOSPHAMIDE [Suspect]
     Indication: T-CELL TYPE ACUTE LEUKAEMIA
  3. COTRIM [Suspect]
     Indication: PNEUMONIA
  4. DEXAMETHASONE [Suspect]
     Indication: T-CELL TYPE ACUTE LEUKAEMIA
  5. LINEZOLID [Suspect]
     Indication: PNEUMONIA
  6. CASPOFUNGIN ACETATE [Suspect]
     Indication: PNEUMONIA

REACTIONS (1)
  - MANIA [None]
